FAERS Safety Report 10177441 (Version 1)
Quarter: 2014Q2

REPORT INFORMATION
  Report Type: Spontaneous
  Country: AU (occurrence: AU)
  Receive Date: 20140516
  Receipt Date: 20140516
  Transmission Date: 20141212
  Serious: Yes (Other)
  Sender: FDA-Public Use
  Company Number: PHHY2014AU057478

PATIENT
  Age: 35 Year
  Sex: Male

DRUGS (3)
  1. GLIVEC [Suspect]
     Indication: CHRONIC MYELOID LEUKAEMIA
     Dosage: UNK UKN, UNK
  2. GLIVEC [Suspect]
     Dosage: 600 MG, PER DAY
  3. GLIVEC [Suspect]
     Dosage: 400 MG, UNK

REACTIONS (4)
  - Muscle necrosis [Unknown]
  - Transplant failure [Unknown]
  - Haemorrhage [Unknown]
  - Impaired healing [Unknown]
